FAERS Safety Report 7412624-8 (Version None)
Quarter: 2011Q2

REPORT INFORMATION
  Report Type: 
  Country: None (occurrence: None)
  Receive Date: 20110404
  Receipt Date: 20100525
  Transmission Date: 20111010
  Serious: Yes (Life-Threatening, Other)
  Sender: FDA-Public Use
  Company Number: 2011MA002867

PATIENT
  Age: 70 Year
  Sex: Female

DRUGS (5)
  1. CHLORHEXIDINE GLUCONATE [Concomitant]
  2. SANDO-K [Concomitant]
  3. PACLITAXEL [Suspect]
     Indication: CHEMOTHERAPY
     Dosage: 140 MG; X1; IV
     Route: 042
     Dates: start: 20100512, end: 20100512
  4. METOCLORPAMIDE [Concomitant]
  5. ZOLEDRONIC ACID [Concomitant]

REACTIONS (4)
  - FEELING ABNORMAL [None]
  - ANAPHYLACTIC REACTION [None]
  - DYSPNOEA [None]
  - FLUSHING [None]
